FAERS Safety Report 17095692 (Version 5)
Quarter: 2020Q1

REPORT INFORMATION
  Report Type: Spontaneous
  Country: BR (occurrence: BR)
  Receive Date: 20191201
  Receipt Date: 20200302
  Transmission Date: 20200409
  Serious: Yes (Other)
  Sender: FDA-Public Use
  Company Number: BR-AMGEN-BRASP2013100430

PATIENT
  Age: 40 Year
  Sex: Female
  Weight: 80 kg

DRUGS (7)
  1. HYDROCHLOROTHIAZIDE. [Concomitant]
     Active Substance: HYDROCHLOROTHIAZIDE
     Indication: ANXIETY
     Dosage: 25 MILLIGRAM, QD
  2. MTX [METHOTREXATE] [Concomitant]
     Active Substance: METHOTREXATE SODIUM
     Dosage: 10 DOSAGE FORM, QWK
  3. ENBREL [Suspect]
     Active Substance: ETANERCEPT
     Dosage: UNK
     Route: 065
     Dates: start: 2011
  4. HYDROCHLOROTHIAZIDE. [Concomitant]
     Active Substance: HYDROCHLOROTHIAZIDE
     Indication: HYPERTENSION
  5. CITALOPRAM [Concomitant]
     Active Substance: CITALOPRAM HYDROBROMIDE
     Indication: HYPERTENSION
     Dosage: UNK UNK, QD
  6. CITALOPRAM [Concomitant]
     Active Substance: CITALOPRAM HYDROBROMIDE
     Indication: ANXIETY
  7. ENBREL [Suspect]
     Active Substance: ETANERCEPT
     Indication: PRODUCT USED FOR UNKNOWN INDICATION
     Dosage: UNK
     Route: 065

REACTIONS (12)
  - Decreased immune responsiveness [Unknown]
  - Pain [Unknown]
  - Mobility decreased [Unknown]
  - Lack of spontaneous speech [Unknown]
  - Spinal pain [Unknown]
  - Influenza [Unknown]
  - Dysstasia [Unknown]
  - Musculoskeletal pain [Unknown]
  - Arthralgia [Unknown]
  - Therapy non-responder [Unknown]
  - Wrong technique in product usage process [Unknown]
  - Emotional disorder [Unknown]
